FAERS Safety Report 4499337-X (Version None)
Quarter: 2004Q4

REPORT INFORMATION
  Report Type: 
  Country: None (occurrence: None)
  Receive Date: 20040928
  Receipt Date: 20040812
  Transmission Date: 20050328
  Serious: No
  Sender: FDA-Public Use
  Company Number: 04P-163-0270365-00

PATIENT
  Age: 66 Year
  Sex: Female

DRUGS (7)
  1. HUMIRA [Suspect]
     Indication: RHEUMATOID ARTHRITIS
     Dosage: 40 MG, 1 IN 2 WK, SUBCUTANEOUS
     Route: 058
     Dates: start: 20040401
  2. PREDNISONE [Concomitant]
  3. NAPROXEN [Concomitant]
  4. GLIPIZIDE [Concomitant]
  5. PANTOPRAZOLE [Concomitant]
  6. AMLODIPINE BESYLATE [Concomitant]
  7. AZATHIOPRINE [Concomitant]

REACTIONS (2)
  - ALOPECIA [None]
  - CONDITION AGGRAVATED [None]
